FAERS Safety Report 10097326 (Version 1)
Quarter: 2014Q2

REPORT INFORMATION
  Report Type: Spontaneous
  Country: US (occurrence: US)
  Receive Date: 20140423
  Receipt Date: 20140423
  Transmission Date: 20141212
  Serious: Yes (Life-Threatening, Hospitalization)
  Sender: FDA-Public Use
  Company Number: PHHY2014US045243

PATIENT
  Age: 78 Year
  Sex: Male

DRUGS (6)
  1. AMIODARONE [Suspect]
     Indication: ATRIAL FIBRILLATION
  2. WARFARIN [Interacting]
  3. ACETYLSALICYLIC ACID [Concomitant]
  4. SIMVASTATIN [Concomitant]
  5. METOPROLOL [Concomitant]
  6. FINASTERIDE [Concomitant]

REACTIONS (10)
  - Myxoedema coma [Unknown]
  - Bradycardia [Unknown]
  - Hypothermia [Unknown]
  - Abdominal distension [Unknown]
  - Pericardial effusion [Unknown]
  - Unresponsive to stimuli [Unknown]
  - Cardio-respiratory arrest [Unknown]
  - International normalised ratio increased [Unknown]
  - Haemorrhage [Unknown]
  - Drug interaction [Unknown]
